FAERS Safety Report 5311687-3 (Version None)
Quarter: 2007Q2

REPORT INFORMATION
  Report Type: 
  Country: None (occurrence: None)
  Receive Date: 20070426
  Receipt Date: 20070426
  Transmission Date: 20071010
  Serious: No
  Sender: FDA-Public Use
  Company Number: None

PATIENT
  Sex: Female
  Weight: 60.1 kg

DRUGS (2)
  1. ERBITUX [Suspect]
     Dosage: 395 MG
     Dates: end: 20060928
  2. GEMCITABINE HCL [Suspect]
     Dosage: 798 MG
     Dates: end: 20060928

REACTIONS (1)
  - HYPOGLYCAEMIA [None]
